FAERS Safety Report 24461610 (Version 1)
Quarter: 2024Q4

REPORT INFORMATION
  Report Type: Report from Study
  Country: MY (occurrence: MY)
  Receive Date: 20241018
  Receipt Date: 20241018
  Transmission Date: 20250115
  Serious: No
  Sender: ROCHE
  Company Number: MY-ROCHE-3563329

PATIENT

DRUGS (1)
  1. MABTHERA [Suspect]
     Active Substance: RITUXIMAB
     Indication: Multiple sclerosis
     Route: 042

REACTIONS (2)
  - Off label use [Unknown]
  - Urinary tract infection [Unknown]
